FAERS Safety Report 24613184 (Version 2)
Quarter: 2024Q4

REPORT INFORMATION
  Report Type: Spontaneous
  Country: US (occurrence: US)
  Receive Date: 20241113
  Receipt Date: 20241210
  Transmission Date: 20250114
  Serious: No
  Sender: BRISTOL-MYERS SQUIBB COMPANY
  Company Number: US-BRISTOL-MYERS SQUIBB COMPANY-2024-177565

PATIENT
  Age: 47 Year
  Sex: Male

DRUGS (1)
  1. IDHIFA [Suspect]
     Active Substance: ENASIDENIB MESYLATE
     Indication: Bone cancer
     Route: 048
     Dates: start: 202410

REACTIONS (5)
  - Nausea [Unknown]
  - Fatigue [Unknown]
  - Off label use [Unknown]
  - Myalgia [Unknown]
  - Arthralgia [Unknown]
